FAERS Safety Report 15622093 (Version 2)
Quarter: 2018Q4

REPORT INFORMATION
  Report Type: Spontaneous
  Country: US (occurrence: US)
  Receive Date: 20181115
  Receipt Date: 20181127
  Transmission Date: 20190205
  Serious: No
  Sender: FDA-Public Use
  Company Number: US-PFIZER INC-2018465316

PATIENT
  Age: 70 Year
  Sex: Female

DRUGS (8)
  1. AZITHROMYCIN ANHYDROUS. [Suspect]
     Active Substance: AZITHROMYCIN ANHYDROUS
     Dosage: UNK
  2. POTASSIUM BICARBONATE. [Suspect]
     Active Substance: POTASSIUM BICARBONATE
     Dosage: UNK
  3. EPINEPHRINE. [Suspect]
     Active Substance: EPINEPHRINE
     Dosage: UNK
  4. ERYTHROMYCIN. [Suspect]
     Active Substance: ERYTHROMYCIN
     Dosage: UNK
  5. CYTOXAN [Suspect]
     Active Substance: CYCLOPHOSPHAMIDE
  6. LOPID [Suspect]
     Active Substance: GEMFIBROZIL
     Dosage: 600 MG, UNK
  7. TEGRETOL [Suspect]
     Active Substance: CARBAMAZEPINE
     Dosage: UNK
  8. IMURAN [Suspect]
     Active Substance: AZATHIOPRINE

REACTIONS (1)
  - Drug hypersensitivity [Unknown]

NARRATIVE: CASE EVENT DATE: 20181106
